FAERS Safety Report 8756155 (Version 1)
Quarter: 2012Q4

REPORT INFORMATION
  Report Type: Report from Study
  Country: CA (occurrence: CA)
  Receive Date: 20120828
  Receipt Date: 20120828
  Transmission Date: 20130627
  Serious: Yes (Other)
  Sender: FDA-Public Use
  Company Number: CA-JNJFOC-20120810514

PATIENT
  Sex: Female
  Weight: 111.5 kg

DRUGS (1)
  1. REMICADE [Suspect]
     Indication: PSORIASIS
     Route: 042
     Dates: start: 20110927, end: 20120815

REACTIONS (3)
  - Psoriasis [Unknown]
  - Serositis [Unknown]
  - Hyperkeratosis [Unknown]
